FAERS Safety Report 9968775 (Version 1)
Quarter: 2014Q1

REPORT INFORMATION
  Report Type: Report from Study
  Country: US (occurrence: US)
  Receive Date: 20140306
  Receipt Date: 20140306
  Transmission Date: 20141002
  Serious: No
  Sender: FDA-Public Use
  Company Number: US-ABBVIE-13P-163-1146147-00

PATIENT
  Sex: Female

DRUGS (13)
  1. HUMIRA [Suspect]
     Indication: RHEUMATOID ARTHRITIS
     Dates: start: 201304
  2. VITAMIN D3 [Concomitant]
     Indication: VITAMIN SUPPLEMENTATION
     Dosage: 5000 IU DAILY
  3. CYMBALTA [Concomitant]
     Indication: ANXIETY
     Dosage: 60MG DAILY
  4. CYMBALTA [Concomitant]
     Indication: DEPRESSION
  5. HYDORCODONE [Concomitant]
     Indication: ARTHRALGIA
     Dosage: 7.5/325MG DAILY
  6. MOBIC [Concomitant]
     Indication: PRODUCT USED FOR UNKNOWN INDICATION
  7. FOLIC ACID [Concomitant]
     Indication: VITAMIN SUPPLEMENTATION
     Dosage: 1MG DAILY
  8. XYZAL [Concomitant]
     Indication: HYPERSENSITIVITY
     Dosage: 1MG DAILY
  9. ALPRAZOLAM [Concomitant]
     Indication: ANXIETY
     Dosage: 0.5MG DAILY
  10. GENERIC FIORICET [Concomitant]
     Indication: MIGRAINE
  11. MULTIVITAMIN [Concomitant]
     Indication: VITAMIN SUPPLEMENTATION
     Dosage: DAILY
  12. BIOTIN [Concomitant]
     Indication: SUPPLEMENTATION THERAPY
     Dosage: 2000MG DAILY
  13. PREDNISONE [Concomitant]
     Indication: PAIN

REACTIONS (6)
  - Device malfunction [Not Recovered/Not Resolved]
  - Incorrect dose administered [Not Recovered/Not Resolved]
  - Arthritis [Unknown]
  - Rheumatoid arthritis [Not Recovered/Not Resolved]
  - Drug ineffective [Not Recovered/Not Resolved]
  - Pain in extremity [Not Recovered/Not Resolved]
